FAERS Safety Report 18321055 (Version 9)
Quarter: 2020Q4

REPORT INFORMATION
  Report Type: Report from Study
  Country: None (occurrence: NL)
  Receive Date: 20200929
  Receipt Date: 20201230
  Transmission Date: 20210113
  Serious: Yes (Other)
  Sender: FDA-Public Use
  Company Number: NL-ABBVIE-20K-114-3488884-00

PATIENT
  Age: 65 Year
  Sex: Male

DRUGS (14)
  1. FANTOMALT [Concomitant]
     Indication: WEIGHT DECREASED
  2. DUODOPA [Suspect]
     Active Substance: CARBIDOPA\LEVODOPA
     Dosage: MD: 14.0 ML; CD: 4.8 ML/H; ED: 5.0 ML
     Route: 050
     Dates: start: 202007, end: 2020
  3. DUODOPA [Suspect]
     Active Substance: CARBIDOPA\LEVODOPA
     Dosage: MD 15.0 ML?REMAINS AT 16 HOURS
     Route: 050
     Dates: start: 2020, end: 2020
  4. DUODOPA [Suspect]
     Active Substance: CARBIDOPA\LEVODOPA
     Dosage: MD: 14.0 ML; CD: 4.3 ML/H; ED: 5.0
     Route: 050
     Dates: start: 202007, end: 202007
  5. MELATONIN [Concomitant]
     Active Substance: MELATONIN
     Indication: PRODUCT USED FOR UNKNOWN INDICATION
  6. DUODOPA [Suspect]
     Active Substance: CARBIDOPA\LEVODOPA
     Indication: PARKINSON^S DISEASE
     Dosage: MD: 15.6, CD: 3.1; ED: 4
     Route: 050
     Dates: start: 20200706, end: 202007
  7. DUODOPA [Suspect]
     Active Substance: CARBIDOPA\LEVODOPA
     Dosage: MD: 14.0 ML; CD: 4.6 ML/H; ED: 5.0 ML
     Route: 050
     Dates: start: 202007, end: 202007
  8. DUODOPA [Suspect]
     Active Substance: CARBIDOPA\LEVODOPA
     Dosage: MD 13.5 ML CD 5.3 ML/H ED 4.5 ML?REMAINS AT 16 HOURS
     Route: 050
     Dates: start: 2020, end: 2020
  9. DUODOPA [Suspect]
     Active Substance: CARBIDOPA\LEVODOPA
     Dosage: MD: 15; CD: 4.3; ED: 5.0, REMAINS AT 16 HOURS
     Route: 050
     Dates: start: 202007, end: 202007
  10. DUODOPA [Suspect]
     Active Substance: CARBIDOPA\LEVODOPA
     Dosage: MD 14.4 ML CD 5.3 ML/H ED 4.5 ML?REMAINS AT 16 HOURS
     Route: 050
     Dates: start: 2020
  11. DUODOPA [Suspect]
     Active Substance: CARBIDOPA\LEVODOPA
     Dosage: MD: 14.0 ML; CD: 5.1 ML/H; ED: 5.0 ML
     Route: 050
     Dates: start: 2020, end: 2020
  12. DUODOPA [Suspect]
     Active Substance: CARBIDOPA\LEVODOPA
     Dosage: MD: 14.0 ML; CD: 5.1 ML/H; ED: 4.5 ML.
     Route: 050
     Dates: start: 2020, end: 2020
  13. MACROGOL [Concomitant]
     Active Substance: POLYETHYLENE GLYCOLS
     Indication: ABNORMAL FAECES
  14. MOVICOLON [Concomitant]
     Active Substance: POLYETHYLENE GLYCOL 3350\POTASSIUM CHLORIDE\SODIUM BICARBONATE\SODIUM CHLORIDE
     Indication: PRODUCT USED FOR UNKNOWN INDICATION

REACTIONS (36)
  - Hyperkinesia [Not Recovered/Not Resolved]
  - Vomiting [Not Recovered/Not Resolved]
  - Cataract [Unknown]
  - Medical device discomfort [Unknown]
  - Feeling abnormal [Not Recovered/Not Resolved]
  - On and off phenomenon [Recovering/Resolving]
  - Emotional disorder [Unknown]
  - Bowel movement irregularity [Not Recovered/Not Resolved]
  - Adverse food reaction [Unknown]
  - Panic reaction [Not Recovered/Not Resolved]
  - Stoma site erythema [Recovered/Resolved]
  - Muscle rigidity [Not Recovered/Not Resolved]
  - Stoma site discharge [Not Recovered/Not Resolved]
  - Speech sound disorder [Not Recovered/Not Resolved]
  - Panic attack [Unknown]
  - Middle insomnia [Not Recovered/Not Resolved]
  - Reduced facial expression [Not Recovered/Not Resolved]
  - Food intolerance [Not Recovered/Not Resolved]
  - Dyskinesia [Not Recovered/Not Resolved]
  - Stoma site erythema [Not Recovered/Not Resolved]
  - Device dislocation [Unknown]
  - Tension [Not Recovered/Not Resolved]
  - Gait disturbance [Not Recovered/Not Resolved]
  - Tremor [Recovered/Resolved]
  - Euphoric mood [Recovered/Resolved]
  - Parkinson^s disease [Not Recovered/Not Resolved]
  - Stress [Not Recovered/Not Resolved]
  - Stoma site pain [Recovered/Resolved]
  - Feeling abnormal [Recovering/Resolving]
  - Speech disorder [Not Recovered/Not Resolved]
  - Product storage error [Recovered/Resolved]
  - Food interaction [Not Recovered/Not Resolved]
  - Bradykinesia [Not Recovered/Not Resolved]
  - Insomnia [Not Recovered/Not Resolved]
  - Unevaluable event [Not Recovered/Not Resolved]
  - Therapeutic product effect incomplete [Not Recovered/Not Resolved]

NARRATIVE: CASE EVENT DATE: 2020
